FAERS Safety Report 4323814-5 (Version None)
Quarter: 2004Q1

REPORT INFORMATION
  Report Type: 
  Country: None (occurrence: None)
  Receive Date: 20040324
  Receipt Date: 20040324
  Transmission Date: 20041129
  Serious: Yes (Other)
  Sender: FDA-Public Use
  Company Number: None

PATIENT
  Sex: Male
  Weight: 30 kg

DRUGS (1)
  1. OXACILLIN [Suspect]
     Indication: SEPSIS
     Dosage: 1.5 GM IV Q 8
     Route: 042
     Dates: start: 20040301, end: 20040323

REACTIONS (2)
  - LIVER FUNCTION TEST ABNORMAL [None]
  - RASH MACULO-PAPULAR [None]
